FAERS Safety Report 10921122 (Version 1)
Quarter: 2015Q1

REPORT INFORMATION
  Report Type: Spontaneous
  Country: US (occurrence: US)
  Receive Date: 20150317
  Receipt Date: 20150317
  Transmission Date: 20150721
  Serious: Yes (Other)
  Sender: FDA-Public Use
  Company Number: US-PFIZER INC-2015091204

PATIENT
  Sex: Male

DRUGS (1)
  1. VIAGRA [Suspect]
     Active Substance: SILDENAFIL CITRATE
     Dosage: UNK
     Route: 048

REACTIONS (7)
  - Libido increased [Unknown]
  - Apparent death [Unknown]
  - Abnormal behaviour [Unknown]
  - Cardiac arrest [Unknown]
  - Vomiting [Unknown]
  - Overdose [Unknown]
  - Erection increased [Unknown]
